FAERS Safety Report 15610170 (Version 1)
Quarter: 2018Q4

REPORT INFORMATION
  Report Type: Spontaneous
  Country: IT (occurrence: IT)
  Receive Date: 20181113
  Receipt Date: 20181113
  Transmission Date: 20190205
  Serious: Yes (Hospitalization)
  Sender: FDA-Public Use
  Company Number: IT-ACCORD-091909

PATIENT
  Age: 11 Year
  Sex: Female
  Weight: 72 kg

DRUGS (19)
  1. MESNA. [Concomitant]
     Active Substance: MESNA
     Route: 042
     Dates: start: 20171115
  2. FLUCONAZOLE. [Concomitant]
     Active Substance: FLUCONAZOLE
  3. URBASON [Concomitant]
     Active Substance: METHYLPREDNISOLONE
     Route: 042
     Dates: start: 20171114
  4. METHOTREXATE. [Suspect]
     Active Substance: METHOTREXATE
     Indication: ALLOGENIC BONE MARROW TRANSPLANTATION THERAPY
     Route: 042
     Dates: start: 20171119, end: 20171124
  5. URSODEOXYCHOLATE SODIUM/URSODEOXYCHOLIC ACID [Concomitant]
  6. THIOTEPA. [Suspect]
     Active Substance: THIOTEPA
     Indication: ALLOGENIC BONE MARROW TRANSPLANTATION THERAPY
     Route: 042
     Dates: start: 20171111, end: 20171112
  7. ACICLOVIR [Concomitant]
     Active Substance: ACYCLOVIR
     Route: 048
     Dates: start: 20171110, end: 20171113
  8. ANTITHYMOCYTE IMMUNOGLOBULIN [Suspect]
     Active Substance: THYMOCYTE IMMUNE GLOBULIN NOS
     Indication: PRODUCT USED FOR UNKNOWN INDICATION
     Route: 042
     Dates: start: 20171113, end: 20171115
  9. TRIMETON [Concomitant]
     Active Substance: CHLORPHENIRAMINE MALEATE
  10. CIPROFLOXACIN. [Concomitant]
     Active Substance: CIPROFLOXACIN
     Dates: start: 20171110, end: 20171115
  11. CICLOSPORIN [Concomitant]
     Active Substance: CYCLOSPORINE
     Dates: start: 20171113
  12. PARACETAMOL [Concomitant]
     Active Substance: ACETAMINOPHEN
     Route: 048
  13. LASIX [Concomitant]
     Active Substance: FUROSEMIDE
     Route: 042
     Dates: start: 20171110
  14. ACICLOVIR [Concomitant]
     Active Substance: ACYCLOVIR
     Route: 042
     Dates: start: 20171114, end: 20171211
  15. ENDOXAN BAXTER [Suspect]
     Active Substance: CYCLOPHOSPHAMIDE
     Indication: ALLOGENIC BONE MARROW TRANSPLANTATION THERAPY
     Route: 042
     Dates: start: 20171113, end: 20171114
  16. RANITIDINE. [Concomitant]
     Active Substance: RANITIDINE
     Route: 042
  17. ENAPREN [Concomitant]
     Active Substance: ENALAPRIL MALEATE
  18. NYSTATIN/NYSTATIN/LIPOSOME [Concomitant]
  19. ANTRA [Concomitant]
     Active Substance: OMEPRAZOLE
     Route: 042

REACTIONS (7)
  - Pulmonary mass [Recovering/Resolving]
  - Vomiting [Recovering/Resolving]
  - Pyrexia [Recovering/Resolving]
  - Cytomegalovirus infection [Recovering/Resolving]
  - Diarrhoea [Recovering/Resolving]
  - Off label use [Unknown]
  - Abdominal pain [Recovering/Resolving]

NARRATIVE: CASE EVENT DATE: 20171204
